FAERS Safety Report 8873160 (Version 2)
Quarter: 2013Q2

REPORT INFORMATION
  Report Type: Spontaneous
  Country: GB (occurrence: GB)
  Receive Date: 20121029
  Receipt Date: 20130523
  Transmission Date: 20140414
  Serious: Yes (Other)
  Sender: FDA-Public Use
  Company Number: GB-MYLANLABS-2012S1021557

PATIENT
  Sex: Male

DRUGS (1)
  1. LETROZOLE [Suspect]
     Indication: BREAST CANCER

REACTIONS (1)
  - Neoplasm progression [Unknown]
